FAERS Safety Report 5445221-4 (Version None)
Quarter: 2007Q3

REPORT INFORMATION
  Report Type: 
  Country: None (occurrence: None)
  Receive Date: 20070730
  Receipt Date: 20070510
  Transmission Date: 20080115
  Serious: Yes (Hospitalization)
  Sender: FDA-Public Use
  Company Number: 241526

PATIENT
  Age: 65 Year
  Sex: Female

DRUGS (2)
  1. RITUXAN [Suspect]
     Indication: RHEUMATOID ARTHRITIS
     Dosage: 500 MG, 1/WEEK, INTRAVENOUS; 1000 MG, 1/WEEK, INTRAVENOUS
     Route: 042
     Dates: start: 20050901
  2. RITUXAN [Suspect]
     Indication: RHEUMATOID ARTHRITIS
     Dosage: 500 MG, 1/WEEK, INTRAVENOUS; 1000 MG, 1/WEEK, INTRAVENOUS
     Route: 042
     Dates: start: 20060301

REACTIONS (1)
  - INFUSION RELATED REACTION [None]
